FAERS Safety Report 7134815-6 (Version None)
Quarter: 2010Q4

REPORT INFORMATION
  Report Type: 
  Country: None (occurrence: None)
  Receive Date: 20101203
  Receipt Date: 20101122
  Transmission Date: 20110411
  Serious: Yes (Other)
  Sender: FDA-Public Use
  Company Number: GXKR2010US13265

PATIENT
  Age: 71 Year
  Sex: Male

DRUGS (1)
  1. CEFAZOLIN (NGX) [Suspect]
     Route: 065

REACTIONS (1)
  - HYPOTENSION [None]
